FAERS Safety Report 9284163 (Version 1)
Quarter: 2013Q2

REPORT INFORMATION
  Report Type: Spontaneous
  Country: AU (occurrence: None)
  Receive Date: 20130502
  Receipt Date: 20130502
  Transmission Date: 20140414
  Serious: Yes (Hospitalization)
  Sender: FDA-Public Use
  Company Number: INT_00241_2013

PATIENT
  Age: 37 Year
  Sex: Female

DRUGS (3)
  1. CEFTRIAXONE (CEFTRIAXONE) [Suspect]
     Indication: ESCHERICHIA BACTERAEMIA
     Dosage: [17 MG/KG]  INTRAVENOUS (NOT OTHERWISE SPECIFIED)?
     Route: 042
     Dates: start: 2011
  2. AMOXICILLIN/CLAVULANIC ACID [Suspect]
     Route: 048
  3. IMMUNOSUPPRESSIVE MEDICATION [Suspect]
     Indication: PRODUCT USED FOR UNKNOWN INDICATION
     Dosage: DF?

REACTIONS (4)
  - Abdominal pain [None]
  - Klebsiella infection [None]
  - Treatment failure [None]
  - Culture urine positive [None]
